FAERS Safety Report 7178769-5 (Version None)
Quarter: 2010Q4

REPORT INFORMATION
  Report Type: 
  Country: None (occurrence: None)
  Receive Date: 20101221
  Receipt Date: 20101213
  Transmission Date: 20110411
  Serious: Yes (Hospitalization)
  Sender: FDA-Public Use
  Company Number: US-US-EMD SERONO, INC.-230232J10USA

PATIENT
  Sex: Female

DRUGS (16)
  1. REBIF [Suspect]
     Indication: MULTIPLE SCLEROSIS
     Route: 058
     Dates: start: 20030618
  2. REBIF [Suspect]
     Route: 058
     Dates: end: 20100702
  3. REBIF [Suspect]
     Route: 058
     Dates: start: 20100723, end: 20101001
  4. REBIF [Suspect]
     Route: 058
     Dates: start: 20101001
  5. ANTIBIOTICS [Concomitant]
     Indication: INJECTION SITE INFECTION
     Dates: start: 20080101
  6. ADDERALL 10 [Concomitant]
     Indication: FATIGUE
     Route: 048
  7. ADDERALL 10 [Concomitant]
     Indication: ATTENTION DEFICIT/HYPERACTIVITY DISORDER
  8. BACLOFEN [Concomitant]
     Indication: MUSCLE SPASTICITY
  9. IMITREX [Concomitant]
     Indication: MIGRAINE
     Route: 048
  10. IMITREX [Concomitant]
     Route: 048
  11. PREDNISONE [Concomitant]
  12. FOLIC ACID [Concomitant]
  13. VITAMIN D [Concomitant]
  14. REGLAN [Concomitant]
  15. TRAMADOL HCL [Concomitant]
  16. PROTONIX [Concomitant]

REACTIONS (7)
  - ANAEMIA [None]
  - FATIGUE [None]
  - GASTRIC ULCER HAEMORRHAGE [None]
  - HAEMORRHAGE [None]
  - INTESTINAL FUNCTIONAL DISORDER [None]
  - WEIGHT DECREASED [None]
  - WHITE BLOOD CELL COUNT DECREASED [None]
